FAERS Safety Report 16455162 (Version 1)
Quarter: 2019Q2

REPORT INFORMATION
  Report Type: Spontaneous
  Country: US (occurrence: US)
  Receive Date: 20190619
  Receipt Date: 20190619
  Transmission Date: 20190711
  Serious: Yes (Other)
  Sender: FDA-Public Use
  Company Number: US-ROCHE-2115352

PATIENT
  Sex: Female

DRUGS (13)
  1. TRIAMTERENE AND HYDROCHLOROTHIAZIDE [Concomitant]
     Active Substance: HYDROCHLOROTHIAZIDE\TRIAMTERENE
  2. PREDNISONE. [Concomitant]
     Active Substance: PREDNISONE
  3. ACTEMRA [Suspect]
     Active Substance: TOCILIZUMAB
     Indication: RHEUMATOID ARTHRITIS
     Dosage: INJECT 0.9ML SD (1 SYRINGE);
     Route: 058
     Dates: start: 20160530
  4. SULFAMETHOXAZOLE/TRIMETHOPRIM [Concomitant]
     Active Substance: SULFAMETHOXAZOLE\TRIMETHOPRIM
  5. FENOFIBRATE. [Concomitant]
     Active Substance: FENOFIBRATE
  6. PROPRANOLOL HCL [Concomitant]
     Active Substance: PROPRANOLOL HYDROCHLORIDE
  7. METHYLPREDNISOLONE DOSE PACK [Concomitant]
  8. BACITRACIN. [Concomitant]
     Active Substance: BACITRACIN
  9. FLUTICASONE PROPIONATE. [Concomitant]
     Active Substance: FLUTICASONE PROPIONATE
  10. LANSOPRAZOLE. [Concomitant]
     Active Substance: LANSOPRAZOLE
  11. HYDROCODONE BITARTRATE/ACETAMINOPHEN [Concomitant]
     Active Substance: ACETAMINOPHEN\HYDROCODONE BITARTRATE
  12. ENBREL [Concomitant]
     Active Substance: ETANERCEPT
  13. ASMANEX [Concomitant]
     Active Substance: MOMETASONE FUROATE
     Dosage: 60 METERED DOSES
     Route: 065

REACTIONS (6)
  - Helicobacter infection [Not Recovered/Not Resolved]
  - Eye infection [Not Recovered/Not Resolved]
  - Gastric disorder [Not Recovered/Not Resolved]
  - Ophthalmic herpes zoster [Not Recovered/Not Resolved]
  - Blood pressure abnormal [Not Recovered/Not Resolved]
  - Weight decreased [Not Recovered/Not Resolved]
